FAERS Safety Report 6486520-7 (Version None)
Quarter: 2009Q4

REPORT INFORMATION
  Report Type: 
  Country: None (occurrence: None)
  Receive Date: 20091005
  Receipt Date: 20090922
  Transmission Date: 20100525
  Serious: Yes (Hospitalization)
  Sender: FDA-Public Use
  Company Number: IR-IGSA-IG595

PATIENT
  Age: 54 Year
  Sex: Male

DRUGS (3)
  1. FLEBOGAMMA [Suspect]
     Indication: MULTIFOCAL MOTOR NEUROPATHY
     Dosage: 50 G IV
     Route: 042
     Dates: start: 20090511, end: 20090515
  2. CEFUROXIME [Concomitant]
  3. AUGMENTIN (AMOXICILLIN-CLAVULANIC ACID) [Concomitant]

REACTIONS (5)
  - HEADACHE [None]
  - HEPATITIS CHOLESTATIC [None]
  - LEUKOCYTOSIS [None]
  - NAUSEA [None]
  - PYREXIA [None]
